FAERS Safety Report 7406542-9 (Version None)
Quarter: 2011Q2

REPORT INFORMATION
  Report Type: 
  Country: None (occurrence: None)
  Receive Date: 20110411
  Receipt Date: 20110329
  Transmission Date: 20111010
  Serious: Yes (Death, Other)
  Sender: FDA-Public Use
  Company Number: IT-ELI_LILLY_AND_COMPANY-EWC020932381

PATIENT
  Age: 55 Year
  Sex: Male

DRUGS (8)
  1. GEMCITABINE HYDROCHLORIDE [Suspect]
     Indication: PROSTATE CANCER
     Dosage: 750 MG, UNKNOWN
     Route: 042
     Dates: start: 20020731, end: 20020828
  2. CISPLATIN [Concomitant]
     Indication: PROSTATE CANCER
     Dosage: 150 MG, UNKNOWN
     Route: 042
     Dates: start: 20020731, end: 20020821
  3. NORMAL SALINE AND KCL [Concomitant]
     Indication: PROPHYLAXIS AGAINST DEHYDRATION
     Dosage: 1.5 UNK, UNKNOWN
     Route: 042
     Dates: start: 20020731, end: 20020828
  4. FUROSEMIDE [Concomitant]
     Dosage: 40 MG, UNKNOWN
     Dates: start: 20020731, end: 20020828
  5. DEXAMETHASONE [Concomitant]
     Indication: PROPHYLAXIS OF NAUSEA AND VOMITING
     Dosage: 20 MG, UNKNOWN
     Dates: start: 20020731, end: 20020828
  6. ALIZAPRIDE [Concomitant]
     Dosage: 100 MG, UNKNOWN
     Dates: start: 20020731, end: 20020828
  7. 5-HT3 ANTIEMETIC [Concomitant]
     Indication: PROPHYLAXIS OF NAUSEA AND VOMITING
     Dosage: UNK, UNKNOWN
     Dates: start: 20020731, end: 20020828
  8. RADIOTHERAPY [Concomitant]
     Indication: PROSTATE CANCER
     Dosage: 1.8 UNKNOWN

REACTIONS (3)
  - DEHYDRATION [None]
  - ABDOMINAL PAIN [None]
  - DIARRHOEA [None]
